FAERS Safety Report 26085442 (Version 1)
Quarter: 2025Q4

REPORT INFORMATION
  Report Type: Spontaneous
  Country: EU (occurrence: EU)
  Receive Date: 20251125
  Receipt Date: 20251125
  Transmission Date: 20260118
  Serious: No
  Sender: ALKEM
  Company Number: EU-ALKEM LABORATORIES LIMITED-MT-ALKEM-2025-03883

PATIENT
  Age: 59 Year
  Sex: Female

DRUGS (1)
  1. ESOMEPRAZOLE MAGNESIUM [Suspect]
     Active Substance: ESOMEPRAZOLE MAGNESIUM
     Indication: Colitis ulcerative
     Dosage: 40 MILLIGRAM, QD (HIGH-DOSE)
     Route: 048

REACTIONS (1)
  - Drug ineffective [Unknown]
